FAERS Safety Report 8187379-2 (Version None)
Quarter: 2012Q1

REPORT INFORMATION
  Report Type: 
  Country: None (occurrence: None)
  Receive Date: 20120306
  Receipt Date: 20120222
  Transmission Date: 20120608
  Serious: Yes (Hospitalization)
  Sender: FDA-Public Use
  Company Number: JP-ROCHE-1038455

PATIENT
  Sex: Male
  Weight: 56 kg

DRUGS (6)
  1. PERSANTIN [Concomitant]
     Route: 048
     Dates: start: 20110512
  2. MIRCERA [Suspect]
     Indication: NEPHROGENIC ANAEMIA
     Route: 058
     Dates: start: 20110901, end: 20111006
  3. CANDESARTAN CILEXETIL [Concomitant]
     Indication: HYPERTENSION
     Route: 048
     Dates: start: 20110512
  4. LIPIDIL [Concomitant]
     Indication: DYSLIPIDAEMIA
     Route: 048
     Dates: start: 19940622
  5. RANITIDINE [Concomitant]
     Route: 048
     Dates: start: 20050907
  6. LENDORMIN [Concomitant]
     Indication: INSOMNIA
     Route: 048
     Dates: start: 20051101

REACTIONS (1)
  - HEPATIC FUNCTION ABNORMAL [None]
